FAERS Safety Report 24153962 (Version 1)
Quarter: 2024Q3

REPORT INFORMATION
  Report Type: Spontaneous
  Country: GB (occurrence: GB)
  Receive Date: 20240730
  Receipt Date: 20240730
  Transmission Date: 20241017
  Serious: Yes (Hospitalization)
  Sender: SANOFI AVENTIS
  Company Number: None

PATIENT
  Age: 83 Year
  Sex: Female

DRUGS (10)
  1. PAROXETINE HYDROCHLORIDE [Suspect]
     Active Substance: PAROXETINE HYDROCHLORIDE\PAROXETINE HYDROCHLORIDE ANHYDROUS
     Dosage: 40 MG, QD (20 MG TABLETS 40 MG ONCE DAILY)
  2. IRBESARTAN [Suspect]
     Active Substance: IRBESARTAN
     Dosage: 75 MG, HS (75 MG TABLETS EVERY NIGHT)
  3. DONEPEZIL [Concomitant]
     Active Substance: DONEPEZIL\DONEPEZIL HYDROCHLORIDE
     Dosage: 10 MG, QD (10 MG TABLETS ONE TO BE TAKEN AT NIGHT)
  4. ATORVASTATIN [Concomitant]
     Active Substance: ATORVASTATIN
     Dosage: 20 MG, QD (20 MG TABLETS TAKE ONE DAILY)
  5. CLOPIDOGREL BISULFATE [Concomitant]
     Active Substance: CLOPIDOGREL BISULFATE
     Dosage: 75 MG, QD (75 MG TABLETS ONE TO BE TAKEN EACH DAY)
  6. FOLIC ACID [Concomitant]
     Active Substance: FOLIC ACID
     Dosage: 5 MG, QD (5 MG TABLETS ONE TO BE TAKEN EACH MORNING)
  7. MIRABEGRON [Concomitant]
     Active Substance: MIRABEGRON
     Dosage: 50 MG, QD (50 MG MODIFIED - RELEASE TABLETS ONE TO BE TAKEN EACH DAY)
  8. FERROUS FUMARATE [Concomitant]
     Active Substance: FERROUS FUMARATE
     Dosage: 210 MG, QD (210 MG TABLETS ONE TO BE TAKEN EACH DAY AT LUNCH)
  9. CALCIUM\CHOLECALCIFEROL [Concomitant]
     Active Substance: CALCIUM\CHOLECALCIFEROL
     Dosage: 1 DF, BID (CHEWABLE TABLETS ONE TO BE TAKEN TWICE A DAY)
  10. SODIUM BICARBONATE [Concomitant]
     Active Substance: SODIUM BICARBONATE
     Dosage: 500 MG (500 MG CAPSULES TWO TO BE TAKEN THREE TIMES A DAY)

REACTIONS (1)
  - Fall [Recovered/Resolved]
